FAERS Safety Report 6988607-9 (Version None)
Quarter: 2010Q3

REPORT INFORMATION
  Report Type: 
  Country: None (occurrence: None)
  Receive Date: 20100916
  Receipt Date: 20100908
  Transmission Date: 20110219
  Serious: Yes (Hospitalization)
  Sender: FDA-Public Use
  Company Number: US-US-EMD SERONO, INC.-7016391

PATIENT
  Sex: Female

DRUGS (3)
  1. REBIF [Suspect]
     Indication: MULTIPLE SCLEROSIS
     Route: 058
     Dates: start: 20090122
  2. DIGOXIN [Concomitant]
     Route: 048
  3. RECLAST [Concomitant]
     Indication: OSTEOPOROSIS

REACTIONS (3)
  - ASTHENIA [None]
  - CYSTITIS [None]
  - PAIN [None]
